FAERS Safety Report 5128893-3 (Version None)
Quarter: 2006Q4

REPORT INFORMATION
  Report Type: 
  Country: None (occurrence: None)
  Receive Date: 20061017
  Receipt Date: 20060628
  Transmission Date: 20070319
  Serious: No
  Sender: FDA-Public Use
  Company Number: US-GLAXOSMITHKLINE-A0610669A

PATIENT
  Age: 15 Month
  Sex: Female

DRUGS (2)
  1. CEFTIN [Suspect]
     Indication: PNEUMONIA
     Dosage: 3ML TWICE PER DAY
     Route: 048
     Dates: start: 20060627
  2. NO CONCURRENT MEDICATION [Concomitant]

REACTIONS (1)
  - VOMITING [None]
